FAERS Safety Report 17686580 (Version 1)
Quarter: 2020Q2

REPORT INFORMATION
  Report Type: Spontaneous
  Country: US (occurrence: US)
  Receive Date: 20200420
  Receipt Date: 20200420
  Transmission Date: 20200714
  Serious: No
  Sender: FDA-Public Use
  Company Number: US-GLENMARK PHARMACEUTICALS-2019GMK040266

PATIENT

DRUGS (1)
  1. FROVATRIPTAN SUCCINATE TABLETS, 2.5 MG [Suspect]
     Active Substance: FROVATRIPTAN SUCCINATE
     Indication: MIGRAINE
     Dosage: UNK, PRN; START DATE: 3 YEARS AGO
     Route: 048

REACTIONS (5)
  - Feeling abnormal [Recovering/Resolving]
  - Headache [Unknown]
  - Nausea [Unknown]
  - Product use in unapproved indication [Unknown]
  - Circumstance or information capable of leading to medication error [Unknown]
